FAERS Safety Report 9200065 (Version 3)
Quarter: 2013Q4

REPORT INFORMATION
  Report Type: Report from Study
  Country: CA (occurrence: CA)
  Receive Date: 20130329
  Receipt Date: 20131009
  Transmission Date: 20140711
  Serious: Yes (Other)
  Sender: FDA-Public Use
  Company Number: CA-ROCHE-1052550

PATIENT
  Age: 56 Year
  Sex: Female
  Weight: 80 kg

DRUGS (13)
  1. ACTEMRA [Suspect]
     Indication: RHEUMATOID ARTHRITIS
     Route: 042
     Dates: start: 20110111
  2. METHOTREXATE [Concomitant]
  3. WELLBUTRIN [Concomitant]
  4. QUININE [Concomitant]
     Indication: MUSCLE RELAXANT THERAPY
  5. PENTAZOLE [Concomitant]
     Indication: GASTROOESOPHAGEAL REFLUX DISEASE
  6. TEMAZEPAM [Concomitant]
  7. SYNTHROID [Concomitant]
  8. MYOCRISIN [Concomitant]
     Route: 065
  9. PERCOCET [Concomitant]
  10. DURAGESIC [Concomitant]
     Route: 065
  11. ADVAIR [Concomitant]
     Route: 065
  12. SALBUTAMOL [Concomitant]
     Route: 065
  13. ESTROGEL [Concomitant]

REACTIONS (6)
  - Wrist surgery [Recovered/Resolved]
  - Shoulder arthroplasty [Recovered/Resolved]
  - Arthrodesis [Unknown]
  - Knee arthroplasty [Unknown]
  - Shoulder operation [Unknown]
  - Weight increased [Unknown]
